FAERS Safety Report 25994260 (Version 1)
Quarter: 2025Q4

REPORT INFORMATION
  Report Type: Spontaneous
  Country: US (occurrence: US)
  Receive Date: 20251104
  Receipt Date: 20251104
  Transmission Date: 20260117
  Serious: Yes (Other)
  Sender: SANOFI AVENTIS
  Company Number: US-SA-2025SA323122

PATIENT
  Sex: Male
  Weight: 68.18 kg

DRUGS (2)
  1. DUPIXENT [Suspect]
     Active Substance: DUPILUMAB
     Indication: Dermatitis atopic
     Dosage: 300 MG, QOW
     Route: 058
  2. METHYLPREDNISOLONE [Concomitant]
     Active Substance: METHYLPREDNISOLONE
     Dates: start: 20251027

REACTIONS (6)
  - Rheumatoid arthritis [Unknown]
  - Skin atrophy [Unknown]
  - Skin haemorrhage [Unknown]
  - Skin swelling [Unknown]
  - Headache [Recovering/Resolving]
  - Eye inflammation [Recovering/Resolving]
